FAERS Safety Report 25027231 (Version 1)
Quarter: 2025Q1

REPORT INFORMATION
  Report Type: Spontaneous
  Country: US (occurrence: US)
  Receive Date: 20250301
  Receipt Date: 20250301
  Transmission Date: 20250409
  Serious: No
  Sender: SANOFI AVENTIS
  Company Number: US-SA-2025SA058015

PATIENT
  Sex: Male

DRUGS (5)
  1. NEXVIAZYME [Suspect]
     Active Substance: AVALGLUCOSIDASE ALFA-NGPT
     Indication: Glycogen storage disease type II
     Dosage: 2300 MG, QOW
     Route: 042
     Dates: start: 202205
  2. STERILE WATER [Concomitant]
     Active Substance: WATER
  3. DEXTROSE [Concomitant]
     Active Substance: DEXTROSE MONOHYDRATE
  4. SOLU-MEDROL [Concomitant]
     Active Substance: METHYLPREDNISOLONE SODIUM SUCCINATE
  5. SOLU-CORTEF [Concomitant]
     Active Substance: HYDROCORTISONE SODIUM SUCCINATE

REACTIONS (1)
  - Weight decreased [Unknown]
